FAERS Safety Report 18464148 (Version 1)
Quarter: 2020Q4

REPORT INFORMATION
  Report Type: Report from Study
  Country: FR (occurrence: FR)
  Receive Date: 20201104
  Receipt Date: 20201104
  Transmission Date: 20210114
  Serious: Yes (Death, Other)
  Sender: FDA-Public Use
  Company Number: FR-JAZZ-2020-FR-002184

PATIENT

DRUGS (1)
  1. DEFITELIO [Suspect]
     Active Substance: DEFIBROTIDE SODIUM
     Indication: VENOOCCLUSIVE LIVER DISEASE
     Dosage: 25 MG/KG/DAY
     Route: 042
     Dates: start: 20190901, end: 20190923

REACTIONS (6)
  - Acute graft versus host disease [Unknown]
  - Cystitis haemorrhagic [Unknown]
  - Acute respiratory distress syndrome [Fatal]
  - Cytomegalovirus infection [Unknown]
  - Multiple organ dysfunction syndrome [Unknown]
  - BK virus infection [Unknown]

NARRATIVE: CASE EVENT DATE: 2019
